FAERS Safety Report 12684962 (Version 2)
Quarter: 2023Q4

REPORT INFORMATION
  Report Type: Spontaneous
  Country: FR (occurrence: FR)
  Receive Date: 20160825
  Receipt Date: 20231221
  Transmission Date: 20240109
  Serious: Yes (Life-Threatening)
  Sender: FDA-Public Use
  Company Number: FR-PFIZER INC-2016397195

PATIENT
  Age: 60 Year
  Sex: Male
  Weight: 104 kg

DRUGS (9)
  1. ATRACURIUM BESYLATE [Suspect]
     Active Substance: ATRACURIUM BESYLATE
     Indication: General anaesthesia
     Dosage: 50 MG, SINGLE
     Route: 042
     Dates: start: 20160803, end: 20160803
  2. TAHOR [Concomitant]
     Active Substance: ATORVASTATIN CALCIUM
  3. ETOMIDATE [Concomitant]
     Active Substance: ETOMIDATE
     Indication: General anaesthesia
     Dosage: 30 MG, UNK
     Dates: start: 20160803
  4. REMIFENTANIL [Concomitant]
     Active Substance: REMIFENTANIL
     Indication: General anaesthesia
     Dosage: UNK
     Dates: start: 20160803
  5. PERINDOPRIL [Concomitant]
     Active Substance: PERINDOPRIL
  6. ALDACTONE [Concomitant]
     Active Substance: SPIRONOLACTONE
  7. BISOPROLOL FUMARATE [Concomitant]
     Active Substance: BISOPROLOL FUMARATE
  8. CORDARONE [Concomitant]
     Active Substance: AMIODARONE HYDROCHLORIDE
  9. ENTRESTO [Concomitant]
     Active Substance: SACUBITRIL\VALSARTAN

REACTIONS (4)
  - Anaphylactic shock [Recovered/Resolved]
  - Bronchospasm [Recovered/Resolved]
  - Circulatory collapse [Recovering/Resolving]
  - Erythema [Recovered/Resolved]

NARRATIVE: CASE EVENT DATE: 20160803
